FAERS Safety Report 6379341-7 (Version None)
Quarter: 2009Q3

REPORT INFORMATION
  Report Type: 
  Country: None (occurrence: None)
  Receive Date: 20090923
  Receipt Date: 20090923
  Transmission Date: 20100115
  Serious: Yes (Hospitalization)
  Sender: FDA-Public Use
  Company Number: None

PATIENT
  Age: 52 Year
  Sex: Female

DRUGS (18)
  1. WARFARIN [Suspect]
     Indication: DEEP VEIN THROMBOSIS
     Dosage: 5 MG PO QD
  2. WARFARIN [Suspect]
     Indication: PULMONARY EMBOLISM
     Dosage: 5 MG PO QD
  3. AUGMENTIN [Concomitant]
  4. ATRIPLA [Concomitant]
  5. CITALOPRAM HYDROBROMIDE [Concomitant]
  6. COLACE [Concomitant]
  7. DEXAMETHASONE 0.5MG TAB [Concomitant]
  8. FOLIC ACID [Concomitant]
  9. LISINOPRIL [Concomitant]
  10. MARINOL [Concomitant]
  11. MEPRON [Concomitant]
  12. MIRALAX [Concomitant]
  13. MORPHINE [Concomitant]
  14. NEURONTIN [Concomitant]
  15. SENNA [Concomitant]
  16. SEREVENT [Concomitant]
  17. SEROQUEL [Concomitant]
  18. ZOFRAN [Concomitant]

REACTIONS (4)
  - DISEASE PROGRESSION [None]
  - HAEMOPTYSIS [None]
  - INFECTION [None]
  - INTERNATIONAL NORMALISED RATIO INCREASED [None]
